FAERS Safety Report 8351258-8 (Version None)
Quarter: 2012Q2

REPORT INFORMATION
  Report Type: 
  Country: None (occurrence: None)
  Receive Date: 20120510
  Receipt Date: 20120507
  Transmission Date: 20120825
  Serious: Yes (Life-Threatening, Hospitalization, Other)
  Sender: FDA-Public Use
  Company Number: DE-BAYER-2012-026807

PATIENT
  Age: 76 Year
  Sex: Male
  Weight: 70 kg

DRUGS (5)
  1. ASPIRIN [Suspect]
     Dosage: 100 MG, UNK
     Route: 048
     Dates: end: 20120312
  2. XARELTO [Suspect]
     Indication: ATRIAL FIBRILLATION
     Dosage: 20 MG, QD
     Dates: start: 20120312, end: 20120315
  3. LEVOFLOXACIN [Concomitant]
     Indication: INFECTION
     Dosage: 250 MG, BID
  4. METOPROLOL TARTRATE [Concomitant]
     Indication: HYPERTENSION
     Dosage: 47.5 MG, QD
  5. VALSARTAN [Concomitant]
     Indication: HYPERTENSION
     Dosage: 40 MG, UNK
     Route: 048

REACTIONS (4)
  - PERICARDIAL HAEMORRHAGE [None]
  - DYSPNOEA [None]
  - ATRIAL FIBRILLATION [None]
  - HAEMORRHAGIC DIATHESIS [None]
